FAERS Safety Report 9710350 (Version 1)
Quarter: 2013Q4

REPORT INFORMATION
  Report Type: Spontaneous
  Country: US (occurrence: US)
  Receive Date: 20131126
  Receipt Date: 20131126
  Transmission Date: 20140711
  Serious: No
  Sender: FDA-Public Use
  Company Number: US-BRISTOL-MYERS SQUIBB COMPANY-18818104

PATIENT
  Age: 70 Year
  Sex: Female

DRUGS (2)
  1. BYETTA [Suspect]
     Dosage: 10MCG BID ON 11APR2013
     Dates: start: 20130328
  2. METFORMIN [Concomitant]
     Route: 048

REACTIONS (2)
  - Nausea [Recovered/Resolved]
  - Fatigue [Not Recovered/Not Resolved]
